FAERS Safety Report 22174214 (Version 1)
Quarter: 2023Q2

REPORT INFORMATION
  Report Type: Spontaneous
  Country: JP (occurrence: JP)
  Receive Date: 20230405
  Receipt Date: 20230405
  Transmission Date: 20230722
  Serious: Yes (Death)
  Sender: FDA-Public Use
  Company Number: JP-JNJFOC-20211003317

PATIENT
  Age: 7 Decade
  Sex: Male

DRUGS (6)
  1. RISPERDAL CONSTA [Suspect]
     Active Substance: RISPERIDONE
     Indication: Schizophrenia
     Route: 030
     Dates: end: 20210722
  2. RISPERDAL CONSTA [Suspect]
     Active Substance: RISPERIDONE
  3. RISPERDAL CONSTA [Suspect]
     Active Substance: RISPERIDONE
  4. RISPERDAL CONSTA [Suspect]
     Active Substance: RISPERIDONE
  5. HALOPERIDOL [Concomitant]
     Active Substance: HALOPERIDOL
     Dosage: PERORAL MEDICINE
     Route: 048
  6. ARIPIPRAZOLE [Concomitant]
     Active Substance: ARIPIPRAZOLE
     Dosage: PERORAL MEDICINE
     Route: 048

REACTIONS (2)
  - Pneumonia aspiration [Fatal]
  - Sedation complication [Unknown]

NARRATIVE: CASE EVENT DATE: 20210101
